FAERS Safety Report 6540985-0 (Version None)
Quarter: 2010Q1

REPORT INFORMATION
  Report Type: 
  Country: None (occurrence: None)
  Receive Date: 20100118
  Receipt Date: 20100109
  Transmission Date: 20100710
  Serious: Yes (Other)
  Sender: FDA-Public Use
  Company Number: PHEH2009US15405

PATIENT
  Sex: Male

DRUGS (2)
  1. EXJADE [Suspect]
     Dosage: 2500 MG, DAILY
     Route: 048
     Dates: start: 20090326
  2. EXJADE [Suspect]
     Dosage: 2000 MG, DAILY
     Route: 048
     Dates: end: 20091105

REACTIONS (3)
  - DIARRHOEA [None]
  - GASTROINTESTINAL OBSTRUCTION [None]
  - INTESTINAL RESECTION [None]
